FAERS Safety Report 23632660 (Version 1)
Quarter: 2024Q1

REPORT INFORMATION
  Report Type: Spontaneous
  Country: US (occurrence: US)
  Receive Date: 20240314
  Receipt Date: 20240314
  Transmission Date: 20240410
  Serious: No
  Sender: FDA-Public Use
  Company Number: ENDB23-04112

PATIENT
  Age: 64 Year
  Sex: Female

DRUGS (2)
  1. XIAFLEX [Suspect]
     Active Substance: COLLAGENASE CLOSTRIDIUM HISTOLYTICUM
     Indication: Dupuytren^s contracture
     Dosage: UNK UNKNOWN, UNKNOWN (THREE INJECTIONS)
     Route: 051
     Dates: start: 20231023
  2. XIAFLEX [Suspect]
     Active Substance: COLLAGENASE CLOSTRIDIUM HISTOLYTICUM
     Dosage: UNK UNKNOWN, UNKNOWN (TWO INJECTIONS)
     Route: 051
     Dates: start: 2019

REACTIONS (4)
  - Pain [Unknown]
  - Peripheral swelling [Unknown]
  - Contusion [Unknown]
  - Product administration error [Unknown]

NARRATIVE: CASE EVENT DATE: 20231023
